FAERS Safety Report 17266792 (Version 1)
Quarter: 2020Q1

REPORT INFORMATION
  Report Type: Other
  Country: PT (occurrence: PT)
  Receive Date: 20200114
  Receipt Date: 20200114
  Transmission Date: 20200409
  Serious: Yes (Death, Hospitalization, Other)
  Sender: FDA-Public Use
  Company Number: PT-ASPEN-GLO2019PT013917

PATIENT
  Age: 69 Year
  Sex: Female

DRUGS (9)
  1. MESNA. [Concomitant]
     Active Substance: MESNA
     Indication: SUPPORTIVE CARE
     Dosage: 600 MG
     Route: 042
  2. FOLINIC ACID [Concomitant]
     Active Substance: LEUCOVORIN
     Indication: SUPPORTIVE CARE
     Dosage: 15 MG
     Route: 042
     Dates: start: 20151208
  3. IFOSFAMIDE. [Suspect]
     Active Substance: IFOSFAMIDE
     Indication: ANGIOCENTRIC LYMPHOMA
     Dosage: 1500 MG
     Route: 042
     Dates: start: 20151208
  4. DEXAMETHASONE. [Suspect]
     Active Substance: DEXAMETHASONE
     Indication: ANGIOCENTRIC LYMPHOMA
     Dosage: 40 MG PER OS
     Route: 048
     Dates: start: 20151208
  5. L-ASPARAGINASE [Suspect]
     Active Substance: ASPARAGINASE
     Dosage: 1000 IU
     Route: 042
     Dates: start: 20151215
  6. ONDANSETRON [Concomitant]
     Active Substance: ONDANSETRON
     Indication: SUPPORTIVE CARE
     Dosage: 8 MG
     Route: 042
  7. L-ASPARAGINASE [Suspect]
     Active Substance: ASPARAGINASE
     Indication: ANGIOCENTRIC LYMPHOMA
     Dosage: 1000 IU
     Route: 042
     Dates: start: 20151215
  8. METHOTREXATE. [Suspect]
     Active Substance: METHOTREXATE
     Indication: ANGIOCENTRIC LYMPHOMA
     Dosage: 2000 MG
     Route: 042
     Dates: start: 20151207
  9. ETOPOSIDE. [Suspect]
     Active Substance: ETOPOSIDE
     Indication: ANGIOCENTRIC LYMPHOMA
     Dosage: 100 MG
     Route: 042
     Dates: start: 20151208

REACTIONS (4)
  - Pyrexia [Fatal]
  - Pancytopenia [Fatal]
  - Multiple organ dysfunction syndrome [Fatal]
  - Infection [Fatal]

NARRATIVE: CASE EVENT DATE: 201512
